FAERS Safety Report 25147603 (Version 1)
Quarter: 2025Q2

REPORT INFORMATION
  Report Type: Spontaneous
  Country: DE (occurrence: DE)
  Receive Date: 20250402
  Receipt Date: 20250402
  Transmission Date: 20250717
  Serious: Yes (Congenital Anomaly, Other)
  Sender: BAUSCH AND LOMB
  Company Number: DE-BAUSCH-BL-2025-004259

PATIENT
  Sex: Female
  Weight: 2.87 kg

DRUGS (4)
  1. BUDESONIDE [Suspect]
     Active Substance: BUDESONIDE
     Indication: Product used for unknown indication
     Route: 064
  2. INFLIXIMAB [Suspect]
     Active Substance: INFLIXIMAB
     Indication: Product used for unknown indication
     Route: 064
     Dates: start: 202301, end: 202309
  3. DIMENHYDRINATE [Concomitant]
     Active Substance: DIMENHYDRINATE
     Indication: Product used for unknown indication
     Route: 065
  4. IMPSTOFF PERTUSSIS [Concomitant]
     Indication: Product used for unknown indication
     Route: 065

REACTIONS (3)
  - Renal aplasia [Not Recovered/Not Resolved]
  - Imperforate hymen [Not Recovered/Not Resolved]
  - Foetal exposure during pregnancy [Unknown]

NARRATIVE: CASE EVENT DATE: 20230901
